FAERS Safety Report 9736439 (Version 1)
Quarter: 2013Q4

REPORT INFORMATION
  Report Type: Spontaneous
  Country: US (occurrence: US)
  Receive Date: 20131206
  Receipt Date: 20131206
  Transmission Date: 20140711
  Serious: Yes (Hospitalization)
  Sender: FDA-Public Use
  Company Number: US-BAYER-2013-148540

PATIENT
  Age: 40 Year
  Sex: Female
  Weight: 82 kg

DRUGS (5)
  1. YASMIN [Suspect]
     Dosage: UNK
  2. FLUCONAZOLE [Concomitant]
     Dosage: 150 MG, UNK
  3. OPTIVAR [Concomitant]
     Dosage: 0.05 %, UNK
  4. ZYRTEC [Concomitant]
     Dosage: 10 MG, UNK
  5. KETEK [Concomitant]
     Indication: SINUSITIS
     Dosage: 400 MG, UNK

REACTIONS (1)
  - Pulmonary embolism [None]
